FAERS Safety Report 8142815-2 (Version None)
Quarter: 2012Q1

REPORT INFORMATION
  Report Type: 
  Country: None (occurrence: None)
  Receive Date: 20120216
  Receipt Date: 20120207
  Transmission Date: 20120608
  Serious: Yes (Hospitalization)
  Sender: FDA-Public Use
  Company Number: US-ASTRAZENECA-2012SE08530

PATIENT
  Age: 61 Year
  Sex: Female

DRUGS (2)
  1. NEURONTIN [Concomitant]
  2. NEXIUM [Suspect]
     Route: 048

REACTIONS (6)
  - ILL-DEFINED DISORDER [None]
  - ASPIRATION [None]
  - DRUG DOSE OMISSION [None]
  - HIATUS HERNIA [None]
  - GASTROOESOPHAGEAL REFLUX DISEASE [None]
  - PNEUMONIA ASPIRATION [None]
